FAERS Safety Report 7485160-0 (Version None)
Quarter: 2011Q2

REPORT INFORMATION
  Report Type: 
  Country: None (occurrence: None)
  Receive Date: 20110517
  Receipt Date: 20110505
  Transmission Date: 20111010
  Serious: Yes (Hospitalization)
  Sender: FDA-Public Use
  Company Number: ES-ROCHE-776341

PATIENT
  Age: 31 Year

DRUGS (8)
  1. RAPAMUNE [Suspect]
     Dosage: REDUCED DOSE
     Route: 065
  2. PREDNISONE TAB [Suspect]
     Route: 065
  3. ORTHOCLONE OKT3 [Suspect]
     Route: 065
  4. PREDNISONE TAB [Suspect]
     Dosage: REDUCED DOSE
     Route: 065
  5. ORTHOCLONE OKT3 [Suspect]
     Route: 065
  6. MYCOPHENOLATE MOFETIL [Suspect]
     Route: 065
  7. MYCOPHENOLATE MOFETIL [Suspect]
     Dosage: REDUCED DOSE
     Route: 065
  8. RAPAMUNE [Suspect]
     Route: 065

REACTIONS (3)
  - HERPES ZOSTER [None]
  - HEPATITIS [None]
  - THROMBOTIC MICROANGIOPATHY [None]
